FAERS Safety Report 12598567 (Version 1)
Quarter: 2016Q3

REPORT INFORMATION
  Report Type: Spontaneous
  Country: US (occurrence: None)
  Receive Date: 20160726
  Receipt Date: 20160726
  Transmission Date: 20161109
  Serious: Yes (Other)
  Sender: FDA-Public Use
  Company Number: None

PATIENT
  Age: 67 Year
  Sex: Female
  Weight: 60.78 kg

DRUGS (5)
  1. VITAMIN D [Concomitant]
     Active Substance: CHOLECALCIFEROL
  2. IBUPROFEN. [Concomitant]
     Active Substance: IBUPROFEN
  3. DULOXETINE HCL DR 30 MG C, 30 MG BRECK [Suspect]
     Active Substance: DULOXETINE HYDROCHLORIDE
     Indication: FIBROMYALGIA
     Dosage: 30 CAPSULE(S) ONCE A DAY TAKEN BY MOUTH
     Route: 048
     Dates: start: 20160707, end: 20160708
  4. CALCIUM [Concomitant]
     Active Substance: CALCIUM
  5. NIACIN. [Concomitant]
     Active Substance: NIACIN

REACTIONS (3)
  - Vitreous floaters [None]
  - Headache [None]
  - Blood pressure increased [None]

NARRATIVE: CASE EVENT DATE: 20160707
